FAERS Safety Report 25910291 (Version 1)
Quarter: 2025Q4

REPORT INFORMATION
  Report Type: Spontaneous
  Country: EU (occurrence: EU)
  Receive Date: 20251012
  Receipt Date: 20251012
  Transmission Date: 20260117
  Serious: Yes (Other)
  Sender: AMGEN
  Company Number: EU-AMGEN-CZESP2025200306

PATIENT
  Age: 33 Year
  Sex: Male

DRUGS (2)
  1. BLINATUMOMAB [Suspect]
     Active Substance: BLINATUMOMAB
     Indication: B-cell type acute leukaemia
     Dosage: UNK
     Route: 065
  2. TECARTUS [Suspect]
     Active Substance: BREXUCABTAGENE AUTOLEUCEL
     Indication: B-cell type acute leukaemia
     Dosage: UNK
     Route: 065
     Dates: start: 202303

REACTIONS (7)
  - B-cell type acute leukaemia [Recovered/Resolved]
  - Cytokine release syndrome [Recovering/Resolving]
  - Neurotoxicity [Recovering/Resolving]
  - Secondary immunodeficiency [Unknown]
  - Graft versus host disease in eye [Unknown]
  - Cytomegalovirus infection reactivation [Unknown]
  - Therapeutic product effect incomplete [Unknown]
